FAERS Safety Report 9154547 (Version 1)
Quarter: 2013Q1

REPORT INFORMATION
  Report Type: Spontaneous
  Country: US (occurrence: None)
  Receive Date: 20130206
  Receipt Date: 20130206
  Transmission Date: 20140127
  Serious: Yes (Hospitalization)
  Sender: FDA-Public Use
  Company Number: DSU-2013-00820

PATIENT
  Age: 58 Year
  Sex: Female
  Weight: 95.26 kg

DRUGS (2)
  1. AZOR (OLMESARTAN MEDOXOMIL, AMLODIPINE BESILATE) (TABLET) (OLMESARTAN MEDOXOMIL, AMLODIPINE BESILATE) [Suspect]
     Route: 048
     Dates: start: 2008
  2. ZOLPIDEM (ZOLPIDEM) (ZOLPIDEM) [Concomitant]

REACTIONS (6)
  - Irritable bowel syndrome [None]
  - Dry mouth [None]
  - Venous thrombosis [None]
  - Dyspnoea [None]
  - Fatigue [None]
  - Decreased appetite [None]
